FAERS Safety Report 14244530 (Version 6)
Quarter: 2018Q4

REPORT INFORMATION
  Report Type: Spontaneous
  Country: GB (occurrence: GB)
  Receive Date: 20171201
  Receipt Date: 20181204
  Transmission Date: 20190204
  Serious: Yes (Other)
  Sender: FDA-Public Use
  Company Number: GB-MYLANLABS-2017M1075034

PATIENT
  Age: 63 Year
  Sex: Female
  Weight: 76 kg

DRUGS (16)
  1. FENTANYL. [Suspect]
     Active Substance: FENTANYL
     Indication: SPINAL ANAESTHESIA
     Dosage: 12 MICROGRAM, TOTAL
     Route: 062
  2. GABAPENTIN. [Concomitant]
     Active Substance: GABAPENTIN
     Indication: PREMEDICATION
     Dosage: 300 MILLIGRAM, TOTAL
     Route: 048
     Dates: start: 20171031, end: 20171031
  3. BUPIVACAINE AND ADRENALIN [Concomitant]
     Active Substance: BUPIVACAINE HYDROCHLORIDE\EPINEPHRINE
     Indication: LOCAL ANAESTHESIA
     Dosage: 20 MILLILITER
     Route: 058
     Dates: start: 20171031, end: 20171031
  4. ADRENALINE                         /00003901/ [Concomitant]
     Active Substance: EPINEPHRINE
     Indication: LOCAL ANAESTHESIA
     Dosage: 20 MILLILITER
     Route: 058
     Dates: start: 20171031, end: 20171031
  5. MARCAIN HEAVY [Interacting]
     Active Substance: BUPIVACAINE HYDROCHLORIDE
     Indication: SPINAL ANAESTHESIA
     Dosage: 2.6 MILLILITER, QD
     Route: 037
     Dates: start: 20171031, end: 20171031
  6. TRANEXAMIC ACID. [Concomitant]
     Active Substance: TRANEXAMIC ACID
     Indication: HAEMORRHAGE PROPHYLAXIS
     Dosage: 1 GRAM, TOTAL
     Dates: start: 20171031, end: 20171031
  7. MIDAZOLAM [Interacting]
     Active Substance: MIDAZOLAM HYDROCHLORIDE
     Indication: SEIZURE
     Dosage: 1 MILLIGRAM, TOTAL
     Route: 042
     Dates: start: 20171031, end: 20171031
  8. PARACETAMOL [Concomitant]
     Active Substance: ACETAMINOPHEN
     Indication: PREMEDICATION
     Dosage: 1 G, TOTAL
     Route: 048
     Dates: start: 20171031, end: 20171031
  9. BUCCASTEM [Concomitant]
     Active Substance: PROCHLORPERAZINE MALEATE
     Indication: PRODUCT USED FOR UNKNOWN INDICATION
     Dosage: 6 MILLIGRAM
     Route: 002
  10. LONGTEC [Interacting]
     Active Substance: OXYCODONE HYDROCHLORIDE
     Indication: PREMEDICATION
     Dosage: 5 MILLIGRAM
     Route: 048
     Dates: start: 20171031, end: 20171031
  11. MIDAZOLAM [Interacting]
     Active Substance: MIDAZOLAM HYDROCHLORIDE
     Indication: SEDATION
     Dosage: 4 MILLIGRAM, TOTAL
     Route: 042
     Dates: start: 20171031, end: 20171031
  12. FENTANYL. [Interacting]
     Active Substance: FENTANYL
     Indication: SPINAL ANAESTHESIA
     Dosage: 20 GRAM, TOTAL
     Route: 037
     Dates: start: 20171031, end: 20171031
  13. LONGTEC [Interacting]
     Active Substance: OXYCODONE HYDROCHLORIDE
     Indication: PAIN
     Dosage: 10 MILLIGRAM, QD
     Route: 048
  14. COCODAMOL [Interacting]
     Active Substance: ACETAMINOPHEN\CODEINE PHOSPHATE
     Indication: PRODUCT USED FOR UNKNOWN INDICATION
     Dosage: 2 DF, QID 30/500MG 2 TABLETS 4 TIMES DAILY
  15. CEFUROXIME. [Concomitant]
     Active Substance: CEFUROXIME
     Indication: INFECTION PROPHYLAXIS
     Dosage: 1.5 GRAM, TOTAL
     Dates: start: 20171031, end: 20171031
  16. BISOXATINE [Concomitant]
     Indication: PRODUCT USED FOR UNKNOWN INDICATION
     Dosage: 6 MILLIGRAM
     Route: 002

REACTIONS (2)
  - Hyperaesthesia [Recovered/Resolved]
  - Drug interaction [Recovered/Resolved]

NARRATIVE: CASE EVENT DATE: 20171031
